FAERS Safety Report 16969728 (Version 2)
Quarter: 2019Q4

REPORT INFORMATION
  Report Type: Spontaneous
  Country: AR (occurrence: AR)
  Receive Date: 20191029
  Receipt Date: 20191101
  Transmission Date: 20200122
  Serious: No
  Sender: FDA-Public Use
  Company Number: AR-PFIZER INC-2019464879

PATIENT
  Age: 74 Year
  Sex: Male

DRUGS (5)
  1. SUTENT [Suspect]
     Active Substance: SUNITINIB MALATE
     Indication: METASTATIC RENAL CELL CARCINOMA
     Dosage: 50 MG, CYCLIC (DAILY, 28DAYS ON + 14 DAYS REST)
     Dates: start: 20131106
  2. DIAMICRON [Concomitant]
     Active Substance: GLICLAZIDE
     Dosage: 1 DF, DAILY
     Dates: start: 20191021
  3. LOSACOR [Concomitant]
     Active Substance: LOSARTAN POTASSIUM
     Dosage: UNK
     Dates: end: 20191021
  4. LOTRIAL [ENALAPRIL MALEATE] [Concomitant]
     Dosage: 2 DF, DAILY
     Dates: end: 20191021
  5. NOSTER [AMLODIPINE BESILATE;VALSARTAN] [Concomitant]
     Dosage: 1 DF, DAILY
     Dates: start: 20191021

REACTIONS (2)
  - Abdominal pain upper [Not Recovered/Not Resolved]
  - Blood creatinine increased [Not Recovered/Not Resolved]

NARRATIVE: CASE EVENT DATE: 2016
